FAERS Safety Report 9837810 (Version 1)
Quarter: 2014Q1

REPORT INFORMATION
  Report Type: Spontaneous
  Country: US (occurrence: None)
  Receive Date: 20140117
  Receipt Date: 20140117
  Transmission Date: 20141002
  Serious: Yes (Hospitalization)
  Sender: FDA-Public Use
  Company Number: None

PATIENT
  Age: 60 Year
  Sex: Female

DRUGS (1)
  1. BACLOFEN [Suspect]
     Indication: PERONEAL NERVE PALSY
     Dosage: ON MEDICATION PRIOR TO ADMISSION
     Route: 048

REACTIONS (1)
  - Convulsion [None]
